FAERS Safety Report 19477423 (Version 1)
Quarter: 2021Q2

REPORT INFORMATION
  Report Type: Spontaneous
  Country: US (occurrence: US)
  Receive Date: 20210630
  Receipt Date: 20210630
  Transmission Date: 20210717
  Serious: No
  Sender: FDA-Public Use
  Company Number: US-PFIZER INC-2021494339

PATIENT
  Age: 56 Year
  Sex: Female

DRUGS (1)
  1. BRAFTOVI [Suspect]
     Active Substance: ENCORAFENIB
     Indication: RECTOSIGMOID CANCER
     Dosage: 300 MG, 1X/DAY
     Dates: start: 20210407

REACTIONS (1)
  - Migraine [Unknown]
